FAERS Safety Report 8820761 (Version 2)
Quarter: 2012Q4

REPORT INFORMATION
  Report Type: 
  Country: IE (occurrence: IE)
  Receive Date: 20121002
  Receipt Date: 20121206
  Transmission Date: 20130627
  Serious: Yes (Hospitalization)
  Sender: FDA-Public Use
  Company Number: IE-ROCHE-1139617

PATIENT
  Sex: Female

DRUGS (3)
  1. XOLAIR [Suspect]
     Indication: PRODUCT USED FOR UNKNOWN INDICATION
     Route: 065
  2. XOLAIR [Suspect]
     Route: 058
     Dates: start: 20060808
  3. XOLAIR [Suspect]
     Route: 065
     Dates: start: 20120620

REACTIONS (8)
  - Loss of consciousness [Not Recovered/Not Resolved]
  - Lower respiratory tract infection [Unknown]
  - Syncope [Unknown]
  - Asthma [Unknown]
  - Sputum increased [Unknown]
  - Dyspnoea [Unknown]
  - Chest discomfort [Unknown]
  - Cough [Unknown]
